FAERS Safety Report 16589883 (Version 2)
Quarter: 2019Q3

REPORT INFORMATION
  Report Type: Spontaneous
  Country: US (occurrence: US)
  Receive Date: 20190718
  Receipt Date: 20190916
  Transmission Date: 20191004
  Serious: Yes (Other)
  Sender: FDA-Public Use
  Company Number: US-UCBSA-2019029865

PATIENT
  Age: 31 Year
  Sex: Male

DRUGS (1)
  1. CIMZIA [Suspect]
     Active Substance: CERTOLIZUMAB PEGOL
     Indication: PSORIATIC ARTHROPATHY
     Dosage: 200 MILLIGRAM, UNK
     Route: 058
     Dates: start: 201905

REACTIONS (3)
  - Abscess [Unknown]
  - Impaired healing [Unknown]
  - Product dose omission [Unknown]

NARRATIVE: CASE EVENT DATE: 20190625
